FAERS Safety Report 23237403 (Version 1)
Quarter: 2023Q4

REPORT INFORMATION
  Report Type: Report from Study
  Country: MX (occurrence: MX)
  Receive Date: 20231128
  Receipt Date: 20231128
  Transmission Date: 20240110
  Serious: Yes (Other)
  Sender: FDA-Public Use
  Company Number: MX-ABBVIE-5511438

PATIENT
  Age: 43 Year
  Sex: Female
  Weight: 70 kg

DRUGS (1)
  1. VENCLEXTA [Suspect]
     Active Substance: VENETOCLAX
     Indication: Chronic lymphocytic leukaemia
     Dosage: FORM STRENGTH: 100 M (DOSE - 400 MILLIGRAM)
     Route: 048
     Dates: start: 20220422

REACTIONS (3)
  - Lymphadenitis [Not Recovered/Not Resolved]
  - Therapeutic product effect decreased [Not Recovered/Not Resolved]
  - Influenza [Recovered/Resolved]

NARRATIVE: CASE EVENT DATE: 20231001
